FAERS Safety Report 7957536-6 (Version None)
Quarter: 2011Q4

REPORT INFORMATION
  Report Type: 
  Country: None (occurrence: None)
  Receive Date: 20111205
  Receipt Date: 20111125
  Transmission Date: 20120403
  Serious: Yes (Hospitalization)
  Sender: FDA-Public Use
  Company Number: US-GLAXOSMITHKLINE-A0956528A

PATIENT
  Sex: Male

DRUGS (8)
  1. TYKERB [Suspect]
     Indication: PRODUCT USED FOR UNKNOWN INDICATION
     Dosage: 1000MG PER DAY
     Route: 048
  2. SPIRONOLACTONE [Concomitant]
  3. XIFAXAN [Concomitant]
  4. COUMADIN [Concomitant]
  5. MULTI-VITAMIN [Concomitant]
  6. LASIX [Concomitant]
  7. VITAMIN D [Concomitant]
  8. IRON [Concomitant]

REACTIONS (3)
  - RENAL FAILURE [None]
  - THROAT TIGHTNESS [None]
  - DYSPNOEA [None]
